FAERS Safety Report 20867356 (Version 1)
Quarter: 2022Q2

REPORT INFORMATION
  Report Type: Spontaneous
  Country: CN (occurrence: CN)
  Receive Date: 20220524
  Receipt Date: 20220524
  Transmission Date: 20220721
  Serious: Yes (Hospitalization)
  Sender: FDA-Public Use
  Company Number: CN-BoehringerIngelheim-2022-BI-170629

PATIENT
  Age: 58 Year
  Sex: Male
  Weight: 68 kg

DRUGS (2)
  1. ALTEPLASE [Suspect]
     Active Substance: ALTEPLASE
     Indication: Thrombolysis
     Dosage: ALTEPLASE FOR INJECTION 59.4 MG WAS DISSOLVED IN 59.4 ML OF WATER FOR INJECTION, AND 10% WAS INTRAVE
     Route: 042
     Dates: start: 20220428, end: 20220428
  2. ALTEPLASE [Suspect]
     Active Substance: ALTEPLASE
     Dosage: THE REMAINING INFUSION WAS COMPLETED WITHIN 60 MINUTES.
     Route: 042
     Dates: start: 20220428, end: 20220428

REACTIONS (4)
  - Cerebral haemorrhage [Recovering/Resolving]
  - Brain herniation [Recovering/Resolving]
  - Aphasia [Recovering/Resolving]
  - Dysphoria [Recovering/Resolving]

NARRATIVE: CASE EVENT DATE: 20220428
